FAERS Safety Report 19069108 (Version 1)
Quarter: 2021Q1

REPORT INFORMATION
  Report Type: Spontaneous
  Country: GB (occurrence: GB)
  Receive Date: 20210329
  Receipt Date: 20210329
  Transmission Date: 20210420
  Serious: Yes (Death, Hospitalization, Other)
  Sender: FDA-Public Use
  Company Number: GB-AMNEAL PHARMACEUTICALS-2021-AMRX-01051

PATIENT
  Age: 77 Year
  Sex: Female

DRUGS (4)
  1. HEPARIN [Concomitant]
     Active Substance: HEPARIN SODIUM
     Indication: MESENTERIC ARTERY THROMBOSIS
  2. HEPARIN [Concomitant]
     Active Substance: HEPARIN SODIUM
     Indication: RENAL ARTERY THROMBOSIS
     Dosage: UNK
     Route: 042
  3. WARFARIN SODIUM. [Suspect]
     Active Substance: WARFARIN SODIUM
     Indication: MESENTERIC ARTERY THROMBOSIS
     Dosage: UNK, ONCE
     Route: 065
  4. WARFARIN SODIUM. [Suspect]
     Active Substance: WARFARIN SODIUM
     Indication: RENAL ARTERY THROMBOSIS
     Dosage: UNK
     Route: 065

REACTIONS (3)
  - International normalised ratio increased [Unknown]
  - Epidermal necrosis [Unknown]
  - Renal failure [Fatal]
